FAERS Safety Report 9306312 (Version 2)
Quarter: 2013Q2

REPORT INFORMATION
  Report Type: Spontaneous
  Country: US (occurrence: None)
  Receive Date: 20130513
  Receipt Date: 20130520
  Transmission Date: 20140414
  Serious: Yes (Other)
  Sender: FDA-Public Use
  Company Number: 2013034721

PATIENT
  Age: 33 Year
  Sex: Male
  Weight: 117.94 kg

DRUGS (7)
  1. HIZENTRA [Suspect]
     Indication: NEUROPATHY PERIPHERAL
     Dosage: 2X/WEEK, 1 GM OVER 10 TO 2 HOURS IN 3 TO 4 SITES SUBCUTANEOUS
     Dates: start: 20130211, end: 20130211
  2. DIPHENHYDRAMINE (DIPHENHYDRAMINE) [Concomitant]
  3. EPINEPHRINE (EPINEPHRINE) [Concomitant]
  4. PROAIR [Concomitant]
  5. GENTAMICIN (GENTAMICIN) [Concomitant]
  6. HYDROCODONE/ACETAMINOPHEN (VICODIN) [Concomitant]
  7. ACETAMINOPHEN (PARACETAMOL) [Concomitant]

REACTIONS (5)
  - Movement disorder [None]
  - Arthralgia [None]
  - Pain in extremity [None]
  - Headache [None]
  - Infusion site infection [None]
